FAERS Safety Report 17565632 (Version 8)
Quarter: 2020Q4

REPORT INFORMATION
  Report Type: Report from Study
  Country: KR (occurrence: KR)
  Receive Date: 20200320
  Receipt Date: 20201214
  Transmission Date: 20210113
  Serious: Yes (Hospitalization)
  Sender: FDA-Public Use
  Company Number: KR-ROCHE-2561956

PATIENT
  Age: 72 Year
  Sex: Male
  Weight: 64.9 kg

DRUGS (74)
  1. GINEXIN-F [Concomitant]
     Dates: start: 20200422, end: 20200427
  2. LANSTON [Concomitant]
     Active Substance: LANSOPRAZOLE
     Dates: start: 20191213, end: 20191226
  3. SELBEX [Concomitant]
     Active Substance: TEPRENONE
     Dates: start: 20200129, end: 20200211
  4. THIAM KIT [Concomitant]
     Dates: start: 20191212, end: 20191213
  5. ALAXYL [Concomitant]
     Active Substance: PLANTAGO SEED\SENNA LEAF
     Indication: CONSTIPATION
     Dates: start: 20191216, end: 20191218
  6. PEMETREXED. [Suspect]
     Active Substance: PEMETREXED
     Indication: NON-SMALL CELL LUNG CANCER
     Dosage: ON 29/OCT/2019, MOST RECENT DOSE OF PEMETREXED PRIOR TO AE ONSET WAS RECEIVED.?PEMETREXED 500 MG/M^2
     Route: 042
     Dates: start: 20190819
  7. TRESTAN [Concomitant]
     Dates: start: 20191211, end: 20191218
  8. TARGIN [Concomitant]
     Active Substance: NALOXONE HYDROCHLORIDE\OXYCODONE HYDROCHLORIDE
     Dates: start: 20200226, end: 20200313
  9. EBASTEL [Concomitant]
     Active Substance: EBASTINE
     Dates: start: 20200113, end: 20200209
  10. MASI [Concomitant]
     Dates: start: 20200106, end: 20200106
  11. MASI [Concomitant]
     Dates: start: 20191203, end: 20191203
  12. ANYCOUGH [Concomitant]
     Active Substance: THEOBROMINE
     Dates: start: 20200129, end: 20200211
  13. TARGIN [Concomitant]
     Active Substance: NALOXONE HYDROCHLORIDE\OXYCODONE HYDROCHLORIDE
     Dates: start: 20191223, end: 20200112
  14. FOLCID [Concomitant]
     Dates: start: 20190810, end: 20191121
  15. MEGACE ORAL SUSPENSION [Concomitant]
     Route: 048
     Dates: start: 20191226, end: 20200108
  16. MASI [Concomitant]
     Dates: start: 20200226, end: 20200226
  17. UNI-C [Concomitant]
     Dates: start: 20200226, end: 20200226
  18. ATROVENT [Concomitant]
     Active Substance: IPRATROPIUM BROMIDE
     Dates: start: 20191212, end: 20191218
  19. RUPAFIN [Concomitant]
     Active Substance: RUPATADINE FUMARATE
     Dates: start: 20200129, end: 20200211
  20. ATEZOLIZUMAB. [Suspect]
     Active Substance: ATEZOLIZUMAB
     Indication: NON-SMALL CELL LUNG CANCER
     Dosage: ON 29/OCT/2019, HE RECEIVED MOST RECENT DOSE OF BLINDED ATEZOLIZUMAB
     Route: 042
     Dates: start: 20190819
  21. TARGIN [Concomitant]
     Active Substance: NALOXONE HYDROCHLORIDE\OXYCODONE HYDROCHLORIDE
     Dates: start: 20200129, end: 20200212
  22. BEECOM HEXA [Concomitant]
     Dates: start: 20191209, end: 20191209
  23. VITAMO [Concomitant]
     Dates: start: 20191203, end: 20191203
  24. UNI-C [Concomitant]
     Dates: start: 20200106, end: 20200106
  25. MUCOPECT [Concomitant]
     Dates: start: 20200303, end: 20200310
  26. CAROL-F [Concomitant]
     Dates: start: 20200303, end: 20200310
  27. MUCOMYST [Concomitant]
     Active Substance: ACETYLCYSTEINE
     Dates: start: 20191212, end: 20191218
  28. STOGAR [Concomitant]
     Active Substance: LAFUTIDINE
     Dates: start: 20191226, end: 20200108
  29. PENIRAMIN [Concomitant]
     Dates: start: 20191226, end: 20191228
  30. VITAMO [Concomitant]
     Dates: start: 20200205, end: 20200205
  31. UNI-C [Concomitant]
     Dates: start: 20200205, end: 20200205
  32. UNI-C [Concomitant]
     Dates: start: 20191209, end: 20191209
  33. LUTHIONE [Concomitant]
     Dates: start: 20200106, end: 20200106
  34. LUTHIONE [Concomitant]
     Dates: start: 20200205, end: 20200205
  35. LUTHIONE [Concomitant]
     Dates: start: 20191203, end: 20191203
  36. CRAVIT [Concomitant]
     Active Substance: LEVOFLOXACIN
     Dates: start: 20200129, end: 20200204
  37. POTENAMIN (SOUTH KOREA) [Concomitant]
     Dates: start: 20200128, end: 20200128
  38. FLUMARIN (SOUTH KOREA) [Concomitant]
     Dates: start: 20200303, end: 20200303
  39. MANNITOL. [Concomitant]
     Active Substance: MANNITOL
     Indication: BRAIN OEDEMA
     Dates: start: 20200427
  40. DUPHALAC EASY [Concomitant]
     Active Substance: LACTULOSE
     Indication: CONSTIPATION
     Dates: start: 20191215, end: 20191218
  41. PETHIDINE [Concomitant]
     Active Substance: MEPERIDINE
     Dates: start: 20191212, end: 20191215
  42. XYZAL [Concomitant]
     Active Substance: LEVOCETIRIZINE DIHYDROCHLORIDE
     Indication: INFLAMMATION
     Dates: start: 20200113, end: 20200209
  43. BEECOM HEXA [Concomitant]
     Dates: start: 20200205, end: 20200205
  44. VITAMO [Concomitant]
     Dates: start: 20191209, end: 20191209
  45. MUCOPECT [Concomitant]
     Dates: start: 20200117, end: 20200210
  46. PULMICORT RESPULES [Concomitant]
     Active Substance: BUDESONIDE
     Dates: start: 20191212, end: 20191218
  47. SOLONDO [Concomitant]
     Active Substance: PREDNISOLONE
     Route: 048
     Dates: start: 20200129, end: 20200211
  48. ADVANTAN [Concomitant]
     Active Substance: METHYLPREDNISOLONE ACEPONATE
     Indication: INFLAMMATION
     Route: 061
     Dates: start: 20191226, end: 20200209
  49. TARGIN [Concomitant]
     Active Substance: NALOXONE HYDROCHLORIDE\OXYCODONE HYDROCHLORIDE
     Indication: PAIN
     Dates: start: 20191215, end: 20200112
  50. STOGAR [Concomitant]
     Active Substance: LAFUTIDINE
     Dates: start: 20200303, end: 20200310
  51. BEECOM HEXA [Concomitant]
     Dates: start: 20200106, end: 20200106
  52. BEECOM HEXA [Concomitant]
     Dates: start: 20191203, end: 20191203
  53. MASI [Concomitant]
     Dates: start: 20191209, end: 20191209
  54. VITAMO [Concomitant]
     Dates: start: 20200106, end: 20200106
  55. UNI-C [Concomitant]
     Dates: start: 20191203, end: 20191203
  56. CRAVIT [Concomitant]
     Active Substance: LEVOFLOXACIN
     Indication: ANTIBIOTIC PROPHYLAXIS
     Dates: start: 20200117, end: 20200122
  57. SUDAFED [Concomitant]
     Active Substance: PSEUDOEPHEDRINE HYDROCHLORIDE
     Dates: start: 20200122, end: 20200131
  58. NASEA [Concomitant]
     Active Substance: RAMOSETRON HYDROCHLORIDE
     Dates: start: 20200303, end: 20200303
  59. DEXAMETHASONE. [Concomitant]
     Active Substance: DEXAMETHASONE
     Indication: BRAIN OEDEMA
     Route: 042
     Dates: start: 20200427
  60. GASTER (SOUTH KOREA) [Concomitant]
     Dates: start: 20200427
  61. GLYCERIN. [Concomitant]
     Active Substance: GLYCERIN
     Dates: start: 20191216, end: 20191216
  62. CISPLATIN. [Suspect]
     Active Substance: CISPLATIN
     Indication: NON-SMALL CELL LUNG CANCER
     Dosage: ON 29/OCT/2019 MOST RECENT DOSE (131.2 MG) OF CISPLATIN PRIOR TO AE ONSET WAS RECEIVED.?CISPLATIN 75
     Route: 042
     Dates: start: 20190819
  63. TRESTAN [Concomitant]
     Dates: start: 20191014
  64. BEECOM HEXA [Concomitant]
     Dates: start: 20200226, end: 20200226
  65. MASI [Concomitant]
     Dates: start: 20200205, end: 20200205
  66. LUTHIONE [Concomitant]
     Dates: start: 20200226, end: 20200226
  67. K CAB [Concomitant]
     Dates: start: 20200427
  68. ULTRACET [Concomitant]
     Active Substance: ACETAMINOPHEN\TRAMADOL HYDROCHLORIDE
     Dates: start: 20191218, end: 20191226
  69. MYPOL (SOUTH KOREA) [Concomitant]
     Dates: start: 20191213, end: 20191226
  70. MOTILITONE [Concomitant]
     Active Substance: HERBALS
     Dates: start: 20191213, end: 20191227
  71. METHYLONE [Concomitant]
     Active Substance: METHYLPREDNISOLONE
     Indication: INFLAMMATION
     Route: 048
     Dates: start: 20191226, end: 20200108
  72. VITAMO [Concomitant]
     Dates: start: 20200226, end: 20200226
  73. COFREL [Concomitant]
     Dates: start: 20200117, end: 20200131
  74. CAROL-F [Concomitant]
     Dates: start: 20191215, end: 20191226

REACTIONS (1)
  - Paralysis recurrent laryngeal nerve [Recovering/Resolving]

NARRATIVE: CASE EVENT DATE: 20191212
